FAERS Safety Report 5240142-4 (Version None)
Quarter: 2007Q1

REPORT INFORMATION
  Report Type: 
  Country: None (occurrence: None)
  Receive Date: 20070216
  Receipt Date: 20070208
  Transmission Date: 20070707
  Serious: Yes (Other)
  Sender: FDA-Public Use
  Company Number: DE-PFIZER INC-2007011234

PATIENT
  Age: 67 Year
  Sex: Female

DRUGS (5)
  1. ATORVASTATIN CALCIUM [Suspect]
     Indication: HYPERCHOLESTEROLAEMIA
     Dosage: DAILY DOSE:5MG
     Route: 048
  2. NEBILET [Concomitant]
     Route: 048
  3. EUTHYROX [Concomitant]
  4. ASPIRIN [Concomitant]
     Route: 048
  5. MICARDIS [Concomitant]
     Route: 048

REACTIONS (4)
  - CARPAL TUNNEL SYNDROME [None]
  - GAMMOPATHY [None]
  - MUSCLE SPASMS [None]
  - PARAESTHESIA [None]
